FAERS Safety Report 8763853 (Version 2)
Quarter: 2013Q1

REPORT INFORMATION
  Report Type: Spontaneous
  Country: BR (occurrence: BR)
  Receive Date: 20120831
  Receipt Date: 20130220
  Transmission Date: 20140127
  Serious: Yes (Death, Other)
  Sender: FDA-Public Use
  Company Number: PHHY2012BR075269

PATIENT
  Age: 75 Year
  Sex: Female

DRUGS (1)
  1. EXELON PATCH [Suspect]
     Indication: DEMENTIA ALZHEIMER^S TYPE
     Dosage: 4.6 MG, 1 PATCH DAILY (9 MG/5CM2)
     Route: 062
     Dates: start: 2011

REACTIONS (3)
  - Pulmonary embolism [Fatal]
  - Dermatitis [Recovered/Resolved]
  - Rash [Recovered/Resolved]
